FAERS Safety Report 7543987-0 (Version None)
Quarter: 2011Q2

REPORT INFORMATION
  Report Type: 
  Country: None (occurrence: None)
  Receive Date: 20110613
  Receipt Date: 20041118
  Transmission Date: 20111010
  Serious: Yes (Death)
  Sender: FDA-Public Use
  Company Number: PHHO2004NL16341

PATIENT
  Sex: Male

DRUGS (2)
  1. DIOVAN HCT [Suspect]
     Indication: ESSENTIAL HYPERTENSION
     Dosage: UNKNOWN
     Dates: end: 20040519
  2. DIOVAN HCT [Suspect]
     Dosage: NO TREATMENT
     Dates: start: 20040520

REACTIONS (1)
  - DEATH [None]
